FAERS Safety Report 11710065 (Version 2)
Quarter: 2015Q4

REPORT INFORMATION
  Report Type: Spontaneous
  Country: US (occurrence: US)
  Receive Date: 20151104
  Receipt Date: 20151110
  Transmission Date: 20160304
  Serious: No
  Sender: FDA-Public Use
  Company Number: US-ELI_LILLY_AND_COMPANY-US201108003683

PATIENT
  Age: 50 Year
  Sex: Female

DRUGS (3)
  1. FORTEO [Suspect]
     Active Substance: TERIPARATIDE
     Dosage: 20 UG, QD
  2. FORTEO [Suspect]
     Active Substance: TERIPARATIDE
     Dosage: 20 UG, QD
  3. FORTEO [Suspect]
     Active Substance: TERIPARATIDE
     Indication: OSTEOPOROSIS
     Dosage: 20 UG, QD
     Dates: start: 20110607

REACTIONS (9)
  - Fall [Unknown]
  - Arthralgia [Unknown]
  - Diarrhoea [Recovering/Resolving]
  - Ankle fracture [Unknown]
  - Muscle spasms [Not Recovered/Not Resolved]
  - Weight bearing difficulty [Unknown]
  - Dizziness postural [Unknown]
  - Arthritis infective [Unknown]
  - Headache [Unknown]

NARRATIVE: CASE EVENT DATE: 20111020
